FAERS Safety Report 12162214 (Version 1)
Quarter: 2016Q1

REPORT INFORMATION
  Report Type: Spontaneous
  Country: US (occurrence: US)
  Receive Date: 20160309
  Receipt Date: 20160309
  Transmission Date: 20160526
  Serious: Yes (Other)
  Sender: FDA-Public Use
  Company Number: US-AMGEN-USASP2016027261

PATIENT
  Sex: Male

DRUGS (1)
  1. VECTIBIX [Suspect]
     Active Substance: PANITUMUMAB
     Indication: HEPATIC NEOPLASM
     Dosage: UNK
     Route: 065
     Dates: end: 20160301

REACTIONS (3)
  - Rash [Unknown]
  - No therapeutic response [Unknown]
  - Hepatic neoplasm [Unknown]
